FAERS Safety Report 21862756 (Version 3)
Quarter: 2023Q1

REPORT INFORMATION
  Report Type: Report from Study
  Country: RU (occurrence: RU)
  Receive Date: 20230114
  Receipt Date: 20230123
  Transmission Date: 20230418
  Serious: Yes (Death, Other)
  Sender: FDA-Public Use
  Company Number: RU-002147023-NVSC2023RU008410

PATIENT
  Sex: Female
  Weight: 58 kg

DRUGS (2)
  1. TAFINLAR [Suspect]
     Active Substance: DABRAFENIB MESYLATE
     Indication: Metastatic malignant melanoma
     Dosage: 150 MG, BID (THERAPY TYPE: TREATMENT) SIXTH LINE THERAPY
     Route: 048
     Dates: start: 20220125, end: 20220413
  2. TRAMETINIB [Suspect]
     Active Substance: TRAMETINIB
     Indication: Metastatic malignant melanoma
     Dosage: UNK (THERAPY TYPE: TREATMENT) SIXTH LINE THERAPY
     Route: 065
     Dates: start: 20220225, end: 20220413

REACTIONS (2)
  - Metastatic malignant melanoma [Fatal]
  - Malignant neoplasm progression [Fatal]
